FAERS Safety Report 8054031-3 (Version None)
Quarter: 2012Q1

REPORT INFORMATION
  Report Type: 
  Country: None (occurrence: None)
  Receive Date: 20120118
  Receipt Date: 20120111
  Transmission Date: 20120608
  Serious: Yes (Other)
  Sender: FDA-Public Use
  Company Number: US-TEVA-316992USA

PATIENT
  Sex: Male

DRUGS (3)
  1. AMLODIPINE [Concomitant]
     Indication: HYPERTENSION
  2. OSTEO BI-FLEX [Concomitant]
  3. TRIAMCINOLONE [Suspect]
     Indication: NASAL CONGESTION
     Dates: start: 20120104

REACTIONS (3)
  - SNEEZING [None]
  - BRONCHOSPASM [None]
  - COUGH [None]
